FAERS Safety Report 19382833 (Version 1)
Quarter: 2021Q2

REPORT INFORMATION
  Report Type: Spontaneous
  Country: US (occurrence: US)
  Receive Date: 20210607
  Receipt Date: 20210607
  Transmission Date: 20210717
  Serious: Yes (Other)
  Sender: FDA-Public Use
  Company Number: US-ALLERGAN-2120779US

PATIENT
  Sex: Male

DRUGS (1)
  1. LEXAPRO [Suspect]
     Active Substance: ESCITALOPRAM OXALATE
     Indication: EXPOSURE DURING PREGNANCY
     Route: 064

REACTIONS (9)
  - Emotional distress [Unknown]
  - Autism spectrum disorder [Unknown]
  - Impaired quality of life [Unknown]
  - Pregnancy [Unknown]
  - Abnormal behaviour [Unknown]
  - Decreased interest [Unknown]
  - Congenital brain damage [Unknown]
  - Pain [Unknown]
  - Injury [Unknown]
